FAERS Safety Report 13122619 (Version 1)
Quarter: 2017Q1

REPORT INFORMATION
  Report Type: Spontaneous
  Country: US (occurrence: US)
  Receive Date: 20170117
  Receipt Date: 20170117
  Transmission Date: 20170428
  Serious: No
  Sender: FDA-Public Use
  Company Number: US-ALLERGAN-1637577US

PATIENT
  Sex: Male

DRUGS (1)
  1. ACZONE [Suspect]
     Active Substance: DAPSONE
     Indication: PIGMENTATION DISORDER
     Route: 061

REACTIONS (2)
  - Hair colour changes [Unknown]
  - Off label use [Unknown]
